FAERS Safety Report 12639419 (Version 1)
Quarter: 2016Q3

REPORT INFORMATION
  Report Type: Report from Study
  Country: JP (occurrence: JP)
  Receive Date: 20160810
  Receipt Date: 20160810
  Transmission Date: 20161109
  Serious: Yes (Life-Threatening, Other)
  Sender: FDA-Public Use
  Company Number: JP-AMGEN-JPNCT2016103495

PATIENT
  Age: 2 Year
  Sex: Female
  Weight: 6 kg

DRUGS (46)
  1. DARBEPOETIN ALFA [Suspect]
     Active Substance: DARBEPOETIN ALFA
     Dosage: 60 MUG, UNK
     Route: 058
     Dates: start: 20150806
  2. ONON [Concomitant]
     Active Substance: PRANLUKAST
     Indication: ASTHMA
     Dosage: UNK
     Route: 048
  3. CALTAN [Concomitant]
     Active Substance: CALCIUM CARBONATE
     Indication: BONE METABOLISM DISORDER
     Dosage: UNK
     Route: 048
  4. SODIUM BICARBONATE. [Concomitant]
     Active Substance: SODIUM BICARBONATE
     Indication: RENAL APLASIA
     Dosage: UNK
     Route: 048
  5. RAVONAL [Concomitant]
     Active Substance: THIOPENTAL
     Dosage: UNK
     Route: 065
  6. PULMICORT TURBUHALER [Concomitant]
     Active Substance: BUDESONIDE
     Indication: ASTHMA
     Dosage: UNK
     Route: 055
  7. MONILAC [Concomitant]
     Active Substance: LACTULOSE
     Indication: CONGENITAL HEPATIC FIBROSIS
     Dosage: UNK
     Route: 048
  8. DARBEPOETIN ALFA [Suspect]
     Active Substance: DARBEPOETIN ALFA
     Dosage: 60 MUG, UNK
     Route: 058
     Dates: start: 20151224
  9. DARBEPOETIN ALFA [Suspect]
     Active Substance: DARBEPOETIN ALFA
     Dosage: 60 MUG, UNK
     Route: 058
     Dates: start: 20160310
  10. WASSER V [Concomitant]
     Indication: RENAL APLASIA
     Dosage: UNK
     Route: 048
  11. INCREMIN [Concomitant]
     Active Substance: FERRIC PYROPHOSPHATE
     Indication: NEPHROGENIC ANAEMIA
     Dosage: UNK
     Route: 048
  12. EPINASTINE HYDROCHLORIDE. [Concomitant]
     Active Substance: EPINASTINE HYDROCHLORIDE
     Indication: DRY SKIN
     Dosage: UNK
     Route: 048
  13. BESOFTEN [Concomitant]
     Active Substance: SODIUM ALGINATE
     Indication: DRY SKIN
     Dosage: UNK
     Route: 061
  14. TRICLORYL [Concomitant]
     Active Substance: TRICLOFOS SODIUM
     Indication: INVESTIGATION
     Dosage: UNK
     Route: 048
  15. DARBEPOETIN ALFA [Suspect]
     Active Substance: DARBEPOETIN ALFA
     Dosage: 60 MUG, UNK
     Route: 058
     Dates: start: 20150508
  16. CEFAZOLIN SODIUM. [Concomitant]
     Active Substance: CEFAZOLIN SODIUM
     Dosage: UNK
     Route: 065
  17. BACTROBAN [Concomitant]
     Active Substance: MUPIROCIN\MUPIROCIN CALCIUM
     Indication: SKIN INFECTION
     Dosage: UNK
     Route: 061
  18. ANAPEINE [Concomitant]
     Active Substance: ROPIVACAINE HYDROCHLORIDE
     Dosage: UNK
     Route: 008
  19. DARBEPOETIN ALFA [Suspect]
     Active Substance: DARBEPOETIN ALFA
     Indication: RENAL APLASIA
     Dosage: 60 MUG, UNK
     Route: 058
     Dates: start: 20150409
  20. DARBEPOETIN ALFA [Suspect]
     Active Substance: DARBEPOETIN ALFA
     Dosage: 60 MUG, UNK
     Route: 058
     Dates: start: 20150718
  21. DARBEPOETIN ALFA [Suspect]
     Active Substance: DARBEPOETIN ALFA
     Dosage: 60 MUG, UNK
     Route: 058
     Dates: start: 20150824
  22. MEPTIN [Concomitant]
     Active Substance: PROCATEROL HYDROCHLORIDE
     Indication: ASTHMA
     Dosage: UNK
     Route: 055
  23. ALFAROL [Concomitant]
     Active Substance: ALFACALCIDOL
     Indication: BONE METABOLISM DISORDER
     Dosage: UNK
     Route: 048
  24. THYRADIN-S [Concomitant]
     Active Substance: LEVOTHYROXINE
     Indication: HYPOTHYROIDISM
     Dosage: UNK
     Route: 048
  25. KEFLEX [Concomitant]
     Active Substance: CEPHALEXIN
     Indication: SKIN INFECTION
     Dosage: UNK
     Route: 048
  26. KENEI ENEMA [Concomitant]
     Indication: CONSTIPATION
     Dosage: UNK
     Route: 054
  27. CLARITHROMYCIN. [Concomitant]
     Active Substance: CLARITHROMYCIN
     Indication: BRONCHITIS
     Dosage: UNK
     Route: 048
  28. DARBEPOETIN ALFA [Suspect]
     Active Substance: DARBEPOETIN ALFA
     Dosage: 60 MUG, UNK
     Route: 058
     Dates: start: 20150910
  29. CARBOCISTEINE [Concomitant]
     Active Substance: CARBOCYSTEINE
     Indication: ASTHMA
     Dosage: UNK
     Route: 048
  30. LAC-B [Concomitant]
     Active Substance: BIFIDOBACTERIUM SPP.
     Indication: ENTEROCOLITIS
     Dosage: UNK
     Route: 048
  31. HIRUDOID [Concomitant]
     Active Substance: GLYCOSAMINOGLYCANS
     Indication: DRY SKIN
     Dosage: UNK
     Route: 061
  32. MIDAZOLAM [Concomitant]
     Active Substance: MIDAZOLAM\MIDAZOLAM HYDROCHLORIDE
     Indication: INVESTIGATION
     Dosage: UNK
     Route: 048
  33. DARBEPOETIN ALFA [Suspect]
     Active Substance: DARBEPOETIN ALFA
     Dosage: 60 MUG, UNK
     Route: 058
     Dates: start: 20150611
  34. DARBEPOETIN ALFA [Suspect]
     Active Substance: DARBEPOETIN ALFA
     Dosage: 60 MUG, UNK
     Route: 058
     Dates: start: 20150924
  35. DARBEPOETIN ALFA [Suspect]
     Active Substance: DARBEPOETIN ALFA
     Dosage: 60 MUG, UNK
     Route: 058
     Dates: start: 20151027
  36. PERIACTIN [Concomitant]
     Active Substance: CYPROHEPTADINE HYDROCHLORIDE
     Indication: DRY SKIN
     Dosage: UNK
     Route: 048
  37. SOLU-MEDROL [Concomitant]
     Active Substance: METHYLPREDNISOLONE SODIUM SUCCINATE
     Indication: RETINAL DISORDER
     Dosage: UNK
     Route: 042
  38. RENAGEL [Concomitant]
     Active Substance: SEVELAMER HYDROCHLORIDE
     Indication: BONE METABOLISM DISORDER
     Dosage: UNK
     Route: 048
  39. SEPAMIT [Concomitant]
     Indication: HYPERTENSION
     Dosage: UNK
     Route: 048
  40. SODIUM PICOSULFATE [Concomitant]
     Active Substance: SODIUM PICOSULFATE
     Indication: CONSTIPATION
     Dosage: UNK
     Route: 048
  41. LOCOID [Concomitant]
     Active Substance: HYDROCORTISONE BUTYRATE
     Indication: DRY SKIN
     Dosage: UNK
     Route: 061
  42. KALIMATE [Concomitant]
     Active Substance: CALCIUM POLYSTYRENE SULFONATE
     Indication: RENAL APLASIA
     Dosage: UNK
     Route: 048
  43. ASVERIN (TIPEPIDINE HIBENZATE) [Concomitant]
     Active Substance: TIPEPIDINE HIBENZATE
     Indication: BRONCHITIS
     Dosage: UNK
     Route: 048
  44. AMLODIPINE [Concomitant]
     Active Substance: AMLODIPINE BESYLATE
     Indication: HYPERTENSION
     Dosage: UNK
     Route: 048
  45. LONGES [Concomitant]
     Active Substance: LISINOPRIL
     Indication: HYPERTENSION
     Dosage: UNK
     Route: 048
  46. RINDERON V [Concomitant]
     Active Substance: BETAMETHASONE VALERATE
     Indication: DRY SKIN
     Dosage: UNK
     Route: 061

REACTIONS (2)
  - Peritonitis bacterial [Recovering/Resolving]
  - Visual acuity reduced [Not Recovered/Not Resolved]

NARRATIVE: CASE EVENT DATE: 20150725
